FAERS Safety Report 25178499 (Version 1)
Quarter: 2025Q2

REPORT INFORMATION
  Report Type: Spontaneous
  Country: CN (occurrence: CN)
  Receive Date: 20250409
  Receipt Date: 20250409
  Transmission Date: 20250716
  Serious: Yes (Hospitalization, Other)
  Sender: SANOFI AVENTIS
  Company Number: CN-SA-2025SA100818

PATIENT
  Age: 68 Year
  Sex: Female
  Weight: 85 kg

DRUGS (8)
  1. TAXOTERE [Suspect]
     Active Substance: DOCETAXEL
     Indication: Breast cancer
     Dosage: 140 MG, Q3W
     Route: 041
     Dates: start: 20250212, end: 20250212
  2. TAXOTERE [Suspect]
     Active Substance: DOCETAXEL
     Dosage: 140 MG, Q3W
     Route: 041
     Dates: start: 20250306, end: 20250306
  3. TAXOTERE [Suspect]
     Active Substance: DOCETAXEL
     Route: 041
     Dates: start: 2025
  4. CYCLOPHOSPHAMIDE [Suspect]
     Active Substance: CYCLOPHOSPHAMIDE
     Indication: Breast cancer
     Dosage: 1100 MG, Q3W
     Route: 041
     Dates: start: 20250212, end: 20250212
  5. CYCLOPHOSPHAMIDE [Suspect]
     Active Substance: CYCLOPHOSPHAMIDE
     Dosage: 1100 MG, Q3W
     Route: 041
     Dates: start: 20250306, end: 20250306
  6. CYCLOPHOSPHAMIDE [Suspect]
     Active Substance: CYCLOPHOSPHAMIDE
     Route: 041
     Dates: start: 2025, end: 2025
  7. SODIUM CHLORIDE [Concomitant]
     Active Substance: SODIUM CHLORIDE
     Indication: Vehicle solution use
     Dosage: 250 ML, Q3W
     Route: 041
     Dates: start: 20250306, end: 20250306
  8. SODIUM CHLORIDE [Concomitant]
     Active Substance: SODIUM CHLORIDE
     Dosage: 100 ML, Q3W
     Route: 041
     Dates: start: 20250306, end: 20250306

REACTIONS (4)
  - Drug-induced liver injury [Recovered/Resolved]
  - Hepatic enzyme increased [Recovered/Resolved]
  - Granulocytopenia [Unknown]
  - Alopecia [Unknown]

NARRATIVE: CASE EVENT DATE: 20250101
